FAERS Safety Report 5316824-2 (Version None)
Quarter: 2007Q2

REPORT INFORMATION
  Report Type: 
  Country: None (occurrence: None)
  Receive Date: 20070504
  Receipt Date: 20070424
  Transmission Date: 20071010
  Serious: Yes (Hospitalization)
  Sender: FDA-Public Use
  Company Number: FR-JNJFOC-20070405916

PATIENT
  Age: 86 Year
  Sex: Female

DRUGS (13)
  1. TRAMADOL HCL [Suspect]
     Route: 048
  2. TRAMADOL HCL [Suspect]
     Indication: DRUG USE FOR UNKNOWN INDICATION
     Route: 048
  3. EFFEXOR [Interacting]
     Indication: DRUG USE FOR UNKNOWN INDICATION
     Route: 048
  4. TERCIAN [Suspect]
     Indication: DRUG USE FOR UNKNOWN INDICATION
     Route: 048
  5. ALDACTACINE [Concomitant]
     Route: 048
  6. DIAMICRON [Concomitant]
     Route: 048
  7. KARDEGIC [Concomitant]
     Route: 048
  8. SERC [Concomitant]
     Route: 048
  9. LOXEN [Concomitant]
     Route: 065
  10. DIGOXIN [Concomitant]
     Route: 048
  11. VASTEN [Concomitant]
     Route: 048
  12. MONICOR [Concomitant]
     Route: 048
  13. LANTUS [Concomitant]
     Indication: DIABETES MELLITUS
     Route: 065

REACTIONS (9)
  - ABDOMINAL PAIN [None]
  - CARDIAC MURMUR [None]
  - DISORIENTATION [None]
  - DRUG INTERACTION [None]
  - FALL [None]
  - INJURY [None]
  - NAUSEA [None]
  - URINARY RETENTION [None]
  - VOMITING [None]
